FAERS Safety Report 14014809 (Version 2)
Quarter: 2017Q4

REPORT INFORMATION
  Report Type: Spontaneous
  Country: US (occurrence: US)
  Receive Date: 20170927
  Receipt Date: 20171109
  Transmission Date: 20180321
  Serious: No
  Sender: FDA-Public Use
  Company Number: US-PFIZER INC-2017360905

PATIENT
  Age: 21 Year
  Sex: Male
  Weight: 113 kg

DRUGS (3)
  1. GENOTROPIN [Suspect]
     Active Substance: SOMATROPIN
     Indication: DIABETES MELLITUS
     Dosage: 2 MG, DAILY
     Dates: start: 2016
  2. GENOTROPIN [Suspect]
     Active Substance: SOMATROPIN
     Dosage: 3 MG, DAILY
     Route: 058
  3. GENOTROPIN [Suspect]
     Active Substance: SOMATROPIN
     Indication: HYPOPITUITARISM
     Dosage: UNK

REACTIONS (3)
  - Laboratory test abnormal [Unknown]
  - Drug dose omission [Unknown]
  - Intentional product misuse [Not Recovered/Not Resolved]
